FAERS Safety Report 15505268 (Version 2)
Quarter: 2018Q4

REPORT INFORMATION
  Report Type: Spontaneous
  Country: JP (occurrence: JP)
  Receive Date: 20181016
  Receipt Date: 20181026
  Transmission Date: 20190205
  Serious: Yes (Hospitalization, Other)
  Sender: FDA-Public Use
  Company Number: JP-APOTEX-2018AP022480

PATIENT
  Sex: Male

DRUGS (1)
  1. PAXIL [Suspect]
     Active Substance: PAROXETINE HYDROCHLORIDE
     Route: 064

REACTIONS (9)
  - Umbilical cord cyst [Recovering/Resolving]
  - Umbilical hernia [Unknown]
  - Foetal exposure during pregnancy [Unknown]
  - Exomphalos [Recovering/Resolving]
  - Foetal heart rate deceleration abnormality [Unknown]
  - Urachal abnormality [Recovering/Resolving]
  - Vesicoureteric reflux [Recovering/Resolving]
  - Hydronephrosis [Unknown]
  - Umbilical cord abnormality [Recovering/Resolving]
